FAERS Safety Report 6151216-8 (Version None)
Quarter: 2009Q2

REPORT INFORMATION
  Report Type: 
  Country: None (occurrence: None)
  Receive Date: 20090408
  Receipt Date: 20090408
  Transmission Date: 20091009
  Serious: Yes (Other)
  Sender: FDA-Public Use
  Company Number: None

PATIENT
  Sex: Female
  Weight: 124.7392 kg

DRUGS (3)
  1. DIGOXIN [Suspect]
     Indication: ATRIAL FIBRILLATION
     Dosage: 250MCG 1 DAILY PO
     Route: 048
     Dates: start: 20090318, end: 20090405
  2. DIGOXIN [Suspect]
     Indication: ATRIAL FLUTTER
     Dosage: 250MCG 1 DAILY PO
     Route: 048
     Dates: start: 20090318, end: 20090405
  3. DIGOXIN [Suspect]
     Indication: CARDIAC FAILURE CONGESTIVE
     Dosage: 250MCG 1 DAILY PO
     Route: 048
     Dates: start: 20090318, end: 20090405

REACTIONS (11)
  - ARRHYTHMIA [None]
  - ATRIAL FIBRILLATION [None]
  - DYSPNOEA [None]
  - FEELING ABNORMAL [None]
  - HEADACHE [None]
  - JOINT SWELLING [None]
  - OEDEMA PERIPHERAL [None]
  - OXYGEN SATURATION DECREASED [None]
  - PALPITATIONS [None]
  - PLEURAL EFFUSION [None]
  - PRODUCT QUALITY ISSUE [None]
